FAERS Safety Report 8234119-4 (Version None)
Quarter: 2012Q1

REPORT INFORMATION
  Report Type: 
  Country: None (occurrence: None)
  Receive Date: 20120326
  Receipt Date: 20120326
  Transmission Date: 20120608
  Serious: No
  Sender: FDA-Public Use
  Company Number: None

PATIENT
  Age: 35 Year
  Sex: Female
  Weight: 71.667 kg

DRUGS (1)
  1. LEVOFLOXACIN [Suspect]
     Indication: SINUSITIS
     Dosage: 500 MG
     Route: 048
     Dates: start: 20120318, end: 20120322

REACTIONS (7)
  - GAIT DISTURBANCE [None]
  - IMPAIRED WORK ABILITY [None]
  - ARTHROPATHY [None]
  - NAUSEA [None]
  - ARTHRITIS [None]
  - ECONOMIC PROBLEM [None]
  - TENDONITIS [None]
